FAERS Safety Report 10342929 (Version 4)
Quarter: 2014Q3

REPORT INFORMATION
  Report Type: Spontaneous
  Country: CN (occurrence: CN)
  Receive Date: 20140725
  Receipt Date: 20140911
  Transmission Date: 20150326
  Serious: Yes (Other)
  Sender: FDA-Public Use
  Company Number: CN-PFIZER INC-2014199113

PATIENT
  Age: 72 Year
  Sex: Male

DRUGS (4)
  1. CORDARONE [Suspect]
     Active Substance: AMIODARONE HYDROCHLORIDE
     Dosage: 0.2 G, DAILY
     Route: 048
  2. COAPROVEL [Suspect]
     Active Substance: HYDROCHLOROTHIAZIDE\IRBESARTAN
     Indication: HYPERTENSION
     Dosage: 1 DF, DAILY
     Route: 048
     Dates: start: 2012, end: 20140719
  3. CORDARONE [Suspect]
     Active Substance: AMIODARONE HYDROCHLORIDE
     Indication: ATRIAL FIBRILLATION
     Dosage: 0.2 G, THRICE A DAY
     Route: 048
     Dates: start: 201403
  4. CORDARONE [Suspect]
     Active Substance: AMIODARONE HYDROCHLORIDE
     Indication: EXTRASYSTOLES
     Dosage: 0.2 G, TWICE A DAY
     Route: 048

REACTIONS (7)
  - Hypotension [Unknown]
  - Thyroid function test abnormal [Unknown]
  - Heart rate decreased [Unknown]
  - Blood bilirubin increased [Recovering/Resolving]
  - Blood potassium decreased [Unknown]
  - Atrial fibrillation [Recovering/Resolving]
  - Renal disorder [Recovering/Resolving]

NARRATIVE: CASE EVENT DATE: 201406
